FAERS Safety Report 9798701 (Version 2)
Quarter: 2014Q1

REPORT INFORMATION
  Report Type: Spontaneous
  Country: US (occurrence: US)
  Receive Date: 20140106
  Receipt Date: 20140106
  Transmission Date: 20141002
  Serious: No
  Sender: FDA-Public Use
  Company Number: US-GILEAD-2010-0029620

PATIENT
  Sex: Male
  Weight: 99.79 kg

DRUGS (13)
  1. LETAIRIS [Suspect]
     Indication: PULMONARY ARTERIAL HYPERTENSION
     Route: 048
     Dates: start: 20100203
  2. REVATIO [Concomitant]
  3. WARFARIN [Concomitant]
  4. TRIAMTERENE-HCTZ [Concomitant]
  5. FUROSEMIDE [Concomitant]
  6. SPIRONOLACTONE [Concomitant]
  7. METOPROLOL [Concomitant]
  8. PREDNISONE [Concomitant]
  9. ACTONEL [Concomitant]
  10. LUNESTA [Concomitant]
  11. OMEPRAZOLE [Concomitant]
  12. ZEGERID [Concomitant]
  13. CALCIUM [Concomitant]

REACTIONS (1)
  - Cough [Unknown]
